FAERS Safety Report 7067884-2 (Version None)
Quarter: 2010Q4

REPORT INFORMATION
  Report Type: 
  Country: None (occurrence: None)
  Receive Date: 20101028
  Receipt Date: 20101026
  Transmission Date: 20110411
  Serious: Yes (Death)
  Sender: FDA-Public Use
  Company Number: TW-SANOFI-AVENTIS-2010SA065322

PATIENT

DRUGS (2)
  1. OXALIPLATIN [Suspect]
     Indication: COLORECTAL CANCER
     Route: 041
  2. OXALIPLATIN [Suspect]
     Route: 041

REACTIONS (1)
  - BONE MARROW FAILURE [None]
